APPROVED DRUG PRODUCT: LEXISCAN
Active Ingredient: REGADENOSON
Strength: 0.4MG/5ML (0.08MG/ML)
Dosage Form/Route: SOLUTION;INTRAVENOUS
Application: N022161 | Product #001 | TE Code: AP
Applicant: ASTELLAS PHARMA US INC
Approved: Apr 10, 2008 | RLD: Yes | RS: Yes | Type: RX

PATENTS:
Patent 8106183 | Expires: Feb 2, 2027
Patent RE47301 | Expires: Feb 2, 2027